FAERS Safety Report 17945054 (Version 2)
Quarter: 2020Q3

REPORT INFORMATION
  Report Type: Report from Study
  Country: US (occurrence: US)
  Receive Date: 20200625
  Receipt Date: 20200731
  Transmission Date: 20201103
  Serious: No
  Sender: FDA-Public Use
  Company Number: US-SA-2020SA162768

PATIENT

DRUGS (2)
  1. DUPILUMAB [Suspect]
     Active Substance: DUPILUMAB
     Indication: ASTHMA
     Dosage: UNK
  2. BREO ELLIPTA [Concomitant]
     Active Substance: FLUTICASONE FUROATE\VILANTEROL TRIFENATATE
     Indication: ASTHMA

REACTIONS (11)
  - Perfume sensitivity [Unknown]
  - Dysphagia [Unknown]
  - Chest discomfort [Unknown]
  - Sensitivity to weather change [Unknown]
  - Sinus operation [Unknown]
  - Asthma [Unknown]
  - Middle insomnia [Unknown]
  - Wheezing [Unknown]
  - Dyspnoea [Unknown]
  - Sleep disorder [Unknown]
  - Cough [Unknown]

NARRATIVE: CASE EVENT DATE: 202002
